FAERS Safety Report 8611920-6 (Version None)
Quarter: 2012Q3

REPORT INFORMATION
  Report Type: 
  Country: None (occurrence: None)
  Receive Date: 20120822
  Receipt Date: 20120814
  Transmission Date: 20120928
  Serious: Yes (Hospitalization)
  Sender: FDA-Public Use
  Company Number: US-BAYER-2012-083891

PATIENT
  Age: 39 Year
  Sex: Female
  Weight: 83.3 kg

DRUGS (12)
  1. COLACE [Concomitant]
     Dosage: UNK
  2. AMBIEN [Concomitant]
     Dosage: UNK
  3. DROSPIRENONE AND ETHINYL ESTRADIOL [Suspect]
     Dosage: UNK
  4. ZOLOFT [Concomitant]
     Dosage: 50 MG, AT NIGHT
     Route: 048
     Dates: start: 20040816, end: 20101022
  5. ZOFRAN [Concomitant]
     Dosage: UNK
  6. VASOTEC [Concomitant]
     Dosage: UNK
  7. OXYCODONE HCL [Concomitant]
     Dosage: UNK
  8. ATIVAN [Concomitant]
     Dosage: UNK
  9. NORMODYNE [Concomitant]
     Dosage: UNK
  10. TYLENOL [Concomitant]
     Dosage: UNK
  11. YAZ [Suspect]
     Indication: CONTRACEPTION
     Dosage: UNK
  12. CATAPRES [Concomitant]
     Dosage: UNK

REACTIONS (2)
  - PULMONARY EMBOLISM [None]
  - DEEP VEIN THROMBOSIS [None]
